FAERS Safety Report 15885076 (Version 1)
Quarter: 2019Q1

REPORT INFORMATION
  Report Type: Spontaneous
  Country: BR (occurrence: BR)
  Receive Date: 20190129
  Receipt Date: 20190129
  Transmission Date: 20190417
  Serious: Yes (Hospitalization, Other)
  Sender: FDA-Public Use
  Company Number: BR-PFIZER INC-2019025121

PATIENT
  Age: 32 Year
  Sex: Female

DRUGS (3)
  1. LORAX//LORAZEPAM [Suspect]
     Active Substance: LORAZEPAM
     Indication: DEPRESSION
     Dosage: 1 TABLET OF 1 MG PER DAY
     Dates: start: 1973
  2. LORAX//LORAZEPAM [Suspect]
     Active Substance: LORAZEPAM
     Dosage: UNK
     Dates: start: 20190114
  3. LORAX//LORAZEPAM [Suspect]
     Active Substance: LORAZEPAM
     Indication: INSOMNIA
     Dosage: 2 TABLETS OF 2 MG PER DAY AT NIGHT

REACTIONS (15)
  - Agitation [Recovered/Resolved]
  - Fibromyalgia [Not Recovered/Not Resolved]
  - Feeling hot [Not Recovered/Not Resolved]
  - Visual impairment [Recovered/Resolved]
  - Osteoporosis [Not Recovered/Not Resolved]
  - Drug dependence [Not Recovered/Not Resolved]
  - Upper limb fracture [Unknown]
  - Feeling abnormal [Recovered/Resolved]
  - Feeling of despair [Recovered/Resolved]
  - Upper limb fracture [Not Recovered/Not Resolved]
  - Limb injury [Recovered/Resolved]
  - Anxiety [Not Recovered/Not Resolved]
  - Balance disorder [Not Recovered/Not Resolved]
  - Fall [Recovered/Resolved]
  - Drug ineffective [Not Recovered/Not Resolved]

NARRATIVE: CASE EVENT DATE: 1973
